FAERS Safety Report 14471556 (Version 1)
Quarter: 2018Q1

REPORT INFORMATION
  Report Type: Spontaneous
  Country: US (occurrence: US)
  Receive Date: 20180131
  Receipt Date: 20180131
  Transmission Date: 20180509
  Serious: No
  Sender: FDA-Public Use
  Company Number: US-BIOGEN-2018BI00514855

PATIENT
  Age: 53 Year
  Sex: Male

DRUGS (2)
  1. TECFIDERA [Suspect]
     Active Substance: DIMETHYL FUMARATE
     Indication: MULTIPLE SCLEROSIS
     Route: 065
     Dates: start: 20170719
  2. TECFIDERA [Suspect]
     Active Substance: DIMETHYL FUMARATE
     Route: 065
     Dates: start: 20180122

REACTIONS (5)
  - Urinary incontinence [Unknown]
  - Fatigue [Unknown]
  - Underdose [Recovered/Resolved]
  - Gait disturbance [Unknown]
  - Anal incontinence [Unknown]

NARRATIVE: CASE EVENT DATE: 201707
